FAERS Safety Report 9046954 (Version 2)
Quarter: 2013Q1

REPORT INFORMATION
  Report Type: Spontaneous
  Country: JP (occurrence: JP)
  Receive Date: 20130204
  Receipt Date: 20130304
  Transmission Date: 20140127
  Serious: Yes (Hospitalization)
  Sender: FDA-Public Use
  Company Number: JP-AMGEN-JPNSP2013006673

PATIENT
  Age: 73 Year
  Sex: Male

DRUGS (5)
  1. ENBREL [Suspect]
     Indication: RHEUMATOID ARTHRITIS
     Dosage: 25 MG, BIWEEKLY
     Route: 058
     Dates: start: 201002
  2. RHEUMATREX                         /00113801/ [Suspect]
     Indication: RHEUMATOID ARTHRITIS
     Dosage: 6 MG, WEEKLY
     Route: 048
     Dates: start: 200908, end: 200912
  3. RHEUMATREX                         /00113801/ [Suspect]
     Dosage: 8 MG, WEEKLY
     Route: 048
     Dates: start: 200912, end: 201108
  4. RHEUMATREX                         /00113801/ [Suspect]
     Dosage: 6 MG, WEEKLY
     Route: 048
     Dates: start: 201108
  5. RHEUMATREX                         /00113801/ [Suspect]
     Dosage: 4 MG, WEEKLY
     Route: 048

REACTIONS (1)
  - Large intestine perforation [Recovered/Resolved]
